FAERS Safety Report 14894845 (Version 1)
Quarter: 2018Q2

REPORT INFORMATION
  Report Type: Spontaneous
  Country: US (occurrence: US)
  Receive Date: 20180515
  Receipt Date: 20180515
  Transmission Date: 20180711
  Serious: Yes (Other)
  Sender: FDA-Public Use
  Company Number: US-HORIZON-DUE-0137-2018

PATIENT
  Age: 57 Year
  Sex: Male

DRUGS (7)
  1. METHOTREXATE. [Concomitant]
     Active Substance: METHOTREXATE
  2. COLCHICINE. [Concomitant]
     Active Substance: COLCHICINE
  3. FOLIC ACID. [Concomitant]
     Active Substance: FOLIC ACID
  4. PREDNISONE. [Concomitant]
     Active Substance: PREDNISONE
  5. HUMIRA [Concomitant]
     Active Substance: ADALIMUMAB
  6. ALLOPURINOL. [Concomitant]
     Active Substance: ALLOPURINOL
  7. DUEXIS [Suspect]
     Active Substance: FAMOTIDINE\IBUPROFEN
     Indication: GOUT
     Dosage: TWICE A WEEK

REACTIONS (9)
  - Off label use [Unknown]
  - Intervertebral disc disorder [Unknown]
  - Back pain [Unknown]
  - Arthralgia [Unknown]
  - Polyarthritis [Unknown]
  - Nail disorder [Unknown]
  - Spinal fusion surgery [Unknown]
  - Gout [Unknown]
  - Fatigue [Unknown]
